FAERS Safety Report 7038360-8 (Version None)
Quarter: 2010Q4

REPORT INFORMATION
  Report Type: 
  Country: None (occurrence: None)
  Receive Date: 20101011
  Receipt Date: 20091123
  Transmission Date: 20110411
  Serious: No
  Sender: FDA-Public Use
  Company Number: US-PFIZER INC-2009275474

PATIENT
  Sex: Male
  Weight: 80.499 kg

DRUGS (5)
  1. NEURONTIN [Suspect]
     Indication: NERVE INJURY
     Dosage: UNK
     Route: 048
     Dates: end: 20090301
  2. LYRICA [Suspect]
     Indication: NERVE INJURY
     Dosage: 200 MG, 3X/DAY
     Route: 048
  3. LYRICA [Suspect]
     Dosage: UNK
     Route: 048
     Dates: start: 20090301
  4. DARVON [Concomitant]
     Dosage: UNK
  5. TYLENOL [Concomitant]
     Dosage: UNK

REACTIONS (2)
  - BURNING SENSATION [None]
  - PAIN [None]
